FAERS Safety Report 25722526 (Version 1)
Quarter: 2025Q3

REPORT INFORMATION
  Report Type: Spontaneous
  Country: US (occurrence: US)
  Receive Date: 20250825
  Receipt Date: 20250825
  Transmission Date: 20251020
  Serious: No
  Sender: SANOFI AVENTIS
  Company Number: US-SA-2025SA250457

PATIENT
  Age: 54 Year
  Sex: Female

DRUGS (7)
  1. DUPIXENT [Suspect]
     Active Substance: DUPILUMAB
     Indication: Neurodermatitis
     Route: 058
     Dates: start: 20250807, end: 20250807
  2. DUPIXENT [Suspect]
     Active Substance: DUPILUMAB
     Dosage: 300 MG, QOW
     Route: 058
     Dates: start: 20250817
  3. CLOBETASOL [Concomitant]
     Active Substance: CLOBETASOL
  4. ASPIRIN [Concomitant]
     Active Substance: ASPIRIN
  5. KETOCONAZOLE [Concomitant]
     Active Substance: KETOCONAZOLE
  6. REPATHA [Concomitant]
     Active Substance: EVOLOCUMAB
  7. PLAVIX [Concomitant]
     Active Substance: CLOPIDOGREL BISULFATE

REACTIONS (6)
  - Injection site mass [Unknown]
  - Injection site pain [Unknown]
  - Injection site bruising [Unknown]
  - Neurodermatitis [Not Recovered/Not Resolved]
  - Pruritus [Not Recovered/Not Resolved]
  - Intentional product misuse [Unknown]

NARRATIVE: CASE EVENT DATE: 20250801
